FAERS Safety Report 8862061 (Version 1)
Quarter: 2012Q4

REPORT INFORMATION
  Report Type: 
  Country: DE (occurrence: DE)
  Receive Date: 20121026
  Receipt Date: 20121026
  Transmission Date: 20130627
  Serious: Yes (Other)
  Sender: FDA-Public Use
  Company Number: DE-PFIZER INC-2012264964

PATIENT
  Sex: Female
  Weight: 65 kg

DRUGS (4)
  1. SORTIS [Suspect]
     Indication: TYPE IIB HYPERLIPIDAEMIA
     Dosage: UNK
     Route: 048
  2. TREDAPTIVE [Suspect]
     Indication: LIPOPROTEIN (A) INCREASED
     Dosage: UNK
     Route: 048
  3. SIMVASTATIN [Suspect]
     Indication: TYPE IIB HYPERLIPIDAEMIA
     Dosage: UNK
     Route: 048
  4. SIMVASTATIN [Suspect]
     Indication: TYPE IIB HYPERLIPIDAEMIA
     Dosage: UNK
     Route: 048

REACTIONS (6)
  - Hepatic enzyme increased [Recovered/Resolved]
  - Abdominal discomfort [Not Recovered/Not Resolved]
  - Weight increased [Not Recovered/Not Resolved]
  - Flushing [Not Recovered/Not Resolved]
  - Appetite disorder [Not Recovered/Not Resolved]
  - Paraesthesia [Not Recovered/Not Resolved]
